FAERS Safety Report 9694975 (Version 1)
Quarter: 2013Q4

REPORT INFORMATION
  Report Type: Spontaneous
  Country: GB (occurrence: GB)
  Receive Date: 20131119
  Receipt Date: 20131119
  Transmission Date: 20140711
  Serious: Yes (Other)
  Sender: FDA-Public Use
  Company Number: GB-BRISTOL-MYERS SQUIBB COMPANY-19816370

PATIENT
  Sex: Male

DRUGS (1)
  1. GLUCOPHAGE POWDER [Suspect]
     Route: 048

REACTIONS (2)
  - Dementia [Unknown]
  - Fluid intake reduced [Unknown]
